FAERS Safety Report 6158045-X (Version None)
Quarter: 2009Q2

REPORT INFORMATION
  Report Type: 
  Country: None (occurrence: None)
  Receive Date: 20090415
  Receipt Date: 20090415
  Transmission Date: 20091009
  Serious: Yes (Life-Threatening, Hospitalization)
  Sender: FDA-Public Use
  Company Number: None

PATIENT
  Age: 82 Year
  Sex: Female
  Weight: 83 kg

DRUGS (1)
  1. NOVOSEVEN RT [Suspect]
     Indication: COAGULOPATHY
     Dosage: 3000MCG ONCE IV BOLUS ONCE
     Route: 040
     Dates: start: 20090412, end: 20090412

REACTIONS (2)
  - ACUTE MYOCARDIAL INFARCTION [None]
  - CARDIAC DISORDER [None]
